FAERS Safety Report 8365071-9 (Version None)
Quarter: 2012Q2

REPORT INFORMATION
  Report Type: 
  Country: None (occurrence: None)
  Receive Date: 20120516
  Receipt Date: 20120424
  Transmission Date: 20120825
  Serious: No
  Sender: FDA-Public Use
  Company Number: US-ASTRAZENECA-2012SE24021

PATIENT
  Age: 6 Year
  Sex: Female
  Weight: 25.4 kg

DRUGS (5)
  1. SINGULAIR [Concomitant]
     Indication: MULTIPLE ALLERGIES
  2. PULMICORT FLEXHALER [Suspect]
     Indication: ASTHMA
     Dosage: 0.5 MG
     Route: 055
     Dates: end: 20120405
  3. PULMICORT FLEXHALER [Suspect]
     Route: 055
     Dates: start: 20120405
  4. PULMICORT FLEXHALER [Suspect]
     Dosage: BID
     Route: 055
     Dates: start: 20120410
  5. XOPENEX [Concomitant]
     Indication: ASTHMA

REACTIONS (1)
  - VAGINAL HAEMORRHAGE [None]
